FAERS Safety Report 4866703-X (Version None)
Quarter: 2005Q4

REPORT INFORMATION
  Report Type: 
  Country: None (occurrence: None)
  Receive Date: 20051221
  Receipt Date: 20051209
  Transmission Date: 20060501
  Serious: Yes (Other)
  Sender: FDA-Public Use
  Company Number: S05-UKI-05681-01

PATIENT
  Age: 73 Year
  Sex: Female

DRUGS (8)
  1. ESCITALOPRAM OXALATE [Suspect]
     Indication: ANXIETY
     Dosage: 10 MG QD PO
     Route: 048
     Dates: start: 20050801, end: 20051109
  2. ESCITALOPRAM OXALATE [Suspect]
     Indication: DEPRESSION
     Dosage: 10 MG QD PO
     Route: 048
     Dates: start: 20050801, end: 20051109
  3. ATENOLOL [Concomitant]
  4. BENDROFLUAZIDE [Concomitant]
  5. LIVIAL [Concomitant]
  6. EPROSARTAN [Concomitant]
  7. LANSOPRAZOLE [Concomitant]
  8. DOXAZOSIN [Concomitant]

REACTIONS (2)
  - ASTHENIA [None]
  - DIFFICULTY IN WALKING [None]
